FAERS Safety Report 4335807-2 (Version None)
Quarter: 2004Q2

REPORT INFORMATION
  Report Type: 
  Country: None (occurrence: None)
  Receive Date: 20040405
  Receipt Date: 20040322
  Transmission Date: 20050107
  Serious: Yes (Hospitalization)
  Sender: FDA-Public Use
  Company Number: CN-SHR-04-023399

PATIENT
  Age: 44 Year
  Sex: Male
  Weight: 75 kg

DRUGS (1)
  1. ULTRAVIST 300 [Suspect]
     Indication: COMPUTERISED TOMOGRAM
     Dosage: 100 ML, 1 DOSE, IV BOLUS
     Route: 040
     Dates: start: 20040322, end: 20040322

REACTIONS (4)
  - CYANOSIS [None]
  - FLUSHING [None]
  - RESPIRATORY DISTRESS [None]
  - SNEEZING [None]
